FAERS Safety Report 10890698 (Version 1)
Quarter: 2015Q1

REPORT INFORMATION
  Report Type: Spontaneous
  Country: US (occurrence: US)
  Receive Date: 20150305
  Receipt Date: 20150305
  Transmission Date: 20150721
  Serious: Yes (Death, Other)
  Sender: FDA-Public Use
  Company Number: US-CIPLA LTD.-2015US01525

PATIENT

DRUGS (7)
  1. PREDNISOLONE. [Concomitant]
     Active Substance: PREDNISOLONE
     Indication: PROPHYLAXIS
     Dosage: 1%
  2. CYTARABINE. [Suspect]
     Active Substance: CYTARABINE
     Indication: ACUTE MYELOID LEUKAEMIA
     Dosage: 1.5G/M2/DAY CONTINUOUS INFUSION ON DAYS 4 THROUGH 7
     Route: 042
  3. IDARUBICIN [Suspect]
     Active Substance: IDARUBICIN
     Indication: MYELODYSPLASTIC SYNDROME
  4. PRAVASTATIN [Suspect]
     Active Substance: PRAVASTATIN\PRAVASTATIN SODIUM
     Indication: ACUTE MYELOID LEUKAEMIA
     Dosage: 1,280 MG DAILY FROM DAY 1 THROUGH DAY 8 OF INDUCTION
     Route: 048
  5. PRAVASTATIN [Suspect]
     Active Substance: PRAVASTATIN\PRAVASTATIN SODIUM
     Indication: MYELODYSPLASTIC SYNDROME
  6. IDARUBICIN [Suspect]
     Active Substance: IDARUBICIN
     Indication: ACUTE MYELOID LEUKAEMIA
     Dosage: 12MG/M2 DAILY ON DAYS 4 THROUGH 6
     Route: 042
  7. CYTARABINE. [Suspect]
     Active Substance: CYTARABINE
     Indication: MYELODYSPLASTIC SYNDROME

REACTIONS (2)
  - Multi-organ failure [Fatal]
  - Sepsis [Unknown]
